FAERS Safety Report 9185009 (Version 1)
Quarter: 2013Q1

REPORT INFORMATION
  Report Type: Spontaneous
  Country: US (occurrence: US)
  Receive Date: 20130325
  Receipt Date: 20130325
  Transmission Date: 20140127
  Serious: Yes (Other)
  Sender: FDA-Public Use
  Company Number: US-ROXANE LABORATORIES, INC.-2013-RO-00400RO

PATIENT
  Age: 48 Year
  Sex: Female

DRUGS (6)
  1. PREDNISONE [Suspect]
     Indication: CUTANEOUS SARCOIDOSIS
     Dosage: 40 MG
  2. METHOTREXATE [Suspect]
     Indication: CUTANEOUS SARCOIDOSIS
  3. HYDROXYCHLOROQUINE [Suspect]
     Indication: CUTANEOUS SARCOIDOSIS
     Dosage: 250 MG
  4. METHYLPREDNISONE [Suspect]
     Indication: CUTANEOUS SARCOIDOSIS
  5. THALIDOMIDE [Suspect]
     Indication: CUTANEOUS SARCOIDOSIS
     Dosage: 100 MG
  6. CORTICOSTEROIDS [Suspect]
     Indication: CUTANEOUS SARCOIDOSIS
     Route: 061

REACTIONS (8)
  - Treatment failure [Recovered/Resolved]
  - Leukopenia [Unknown]
  - Liver function test abnormal [Unknown]
  - Neuropathy peripheral [Unknown]
  - Abdominal discomfort [Unknown]
  - Fatigue [Unknown]
  - Diarrhoea [Unknown]
  - Abdominal pain [Unknown]
